FAERS Safety Report 13360700 (Version 4)
Quarter: 2017Q2

REPORT INFORMATION
  Report Type: Spontaneous
  Country: AT (occurrence: AT)
  Receive Date: 20170322
  Receipt Date: 20170518
  Transmission Date: 20170830
  Serious: Yes (Other)
  Sender: FDA-Public Use
  Company Number: AT-ALLERGAN-1710685US

PATIENT
  Sex: Female
  Weight: 55 kg

DRUGS (4)
  1. ESCITALOPRAM OXALATE - BP [Suspect]
     Active Substance: ESCITALOPRAM OXALATE
     Indication: DEPRESSION
     Dosage: 5 MG, QD
     Route: 065
     Dates: start: 20170213
  2. ESCITALOPRAM OXALATE - BP [Suspect]
     Active Substance: ESCITALOPRAM OXALATE
     Dosage: 5 MG, QD
     Dates: end: 20170309
  3. ESCITALOPRAM OXALATE - BP [Suspect]
     Active Substance: ESCITALOPRAM OXALATE
     Indication: ANXIETY
     Dosage: 10 MG, QD
  4. TRITTICO [Concomitant]
     Active Substance: TRAZODONE HYDROCHLORIDE
     Indication: SLEEP DISORDER
     Dosage: 50 MG IN THE EVENING
     Dates: start: 20170201

REACTIONS (6)
  - Sucrose intolerance [Recovered/Resolved]
  - Electrocardiogram ST segment depression [Unknown]
  - Angina pectoris [Recovered/Resolved]
  - Restlessness [Recovered/Resolved]
  - Thirst [Recovered/Resolved]
  - Micturition urgency [Unknown]
